FAERS Safety Report 5445453-5 (Version None)
Quarter: 2007Q3

REPORT INFORMATION
  Report Type: 
  Country: None (occurrence: None)
  Receive Date: 20070731
  Receipt Date: 20061010
  Transmission Date: 20080115
  Serious: Yes (Hospitalization)
  Sender: FDA-Public Use
  Company Number: 146494USA

PATIENT
  Age: 60 Year
  Sex: Female

DRUGS (3)
  1. QUINIDINE SULFATE [Suspect]
     Indication: ATRIAL FIBRILLATION
     Dates: start: 19990126, end: 19990410
  2. WARFARIN SODIUM [Suspect]
  3. CELEBREX [Concomitant]

REACTIONS (1)
  - IDIOPATHIC THROMBOCYTOPENIC PURPURA [None]
